FAERS Safety Report 8381884-1 (Version None)
Quarter: 2012Q2

REPORT INFORMATION
  Report Type: 
  Country: None (occurrence: None)
  Receive Date: 20120522
  Receipt Date: 20120522
  Transmission Date: 20120825
  Serious: Yes (Life-Threatening)
  Sender: FDA-Public Use
  Company Number: None

PATIENT
  Sex: Male
  Weight: 101.1521 kg

DRUGS (1)
  1. OXALIPLATIN [Suspect]
     Indication: COLON CANCER
     Dosage: 170MG IV
     Route: 042
     Dates: start: 20120320, end: 20120516

REACTIONS (4)
  - TONGUE OEDEMA [None]
  - COMMUNICATION DISORDER [None]
  - RASH ERYTHEMATOUS [None]
  - OEDEMA PERIPHERAL [None]
